FAERS Safety Report 7311998-6 (Version None)
Quarter: 2011Q1

REPORT INFORMATION
  Report Type: 
  Country: None (occurrence: None)
  Receive Date: 20110224
  Receipt Date: 20110218
  Transmission Date: 20110831
  Serious: Yes (Hospitalization)
  Sender: FDA-Public Use
  Company Number: FR-ROCHE-761007

PATIENT
  Age: 54 Year
  Sex: Female

DRUGS (6)
  1. CRESTOR [Concomitant]
  2. ROACTEMRA [Suspect]
     Indication: OVERLAP SYNDROME
     Dosage: START DATE REPORTED AS SPRING 2010
     Route: 065
     Dates: start: 20100101
  3. CACIT D3 [Concomitant]
  4. EUPANTOL [Concomitant]
  5. PARACETAMOL [Concomitant]
     Dosage: DRUG REPORTED AS PARACETAMOL CODEINE
  6. PREDNISONE [Concomitant]

REACTIONS (2)
  - RENAL COLIC [None]
  - PYELONEPHRITIS [None]
